FAERS Safety Report 6228252-6 (Version None)
Quarter: 2009Q2

REPORT INFORMATION
  Report Type: 
  Country: None (occurrence: None)
  Receive Date: 20090612
  Receipt Date: 20090529
  Transmission Date: 20091009
  Serious: Yes (Other)
  Sender: FDA-Public Use
  Company Number: PHHY2009ES21050

PATIENT
  Age: 56 Year
  Sex: Male

DRUGS (5)
  1. LESCOL [Suspect]
     Dosage: 80 MG, QD
     Route: 048
     Dates: start: 20060101
  2. NITROGLYCERIN [Concomitant]
     Indication: ACUTE MYOCARDIAL INFARCTION
     Dosage: 10 MG/DAY
     Route: 062
     Dates: start: 20060101
  3. ASTUDAL [Concomitant]
     Indication: ACUTE MYOCARDIAL INFARCTION
     Dosage: UNK
     Dates: start: 20060101
  4. COROPRES [Concomitant]
     Indication: ACUTE MYOCARDIAL INFARCTION
     Dosage: 12.5 MG, BID
     Route: 048
     Dates: start: 20060101
  5. DUPHALAC [Concomitant]
     Indication: CONSTIPATION
     Dosage: UNK
     Dates: start: 20060101

REACTIONS (2)
  - ACUTE MYOCARDIAL INFARCTION [None]
  - RHABDOMYOLYSIS [None]
